FAERS Safety Report 19372828 (Version 1)
Quarter: 2021Q2

REPORT INFORMATION
  Report Type: Spontaneous
  Country: US (occurrence: US)
  Receive Date: 20210604
  Receipt Date: 20210604
  Transmission Date: 20210717
  Serious: Yes (Life-Threatening, Hospitalization, Other)
  Sender: FDA-Public Use
  Company Number: US-MICRO LABS LIMITED-ML2021-01761

PATIENT
  Age: 73 Year
  Sex: Male

DRUGS (4)
  1. DIURETICS [Suspect]
     Active Substance: UNSPECIFIED INGREDIENT
     Indication: RESPIRATORY FAILURE
  2. DIURETICS [Suspect]
     Active Substance: UNSPECIFIED INGREDIENT
     Indication: CARDIOGENIC SHOCK
  3. SODIUM NITROPRUSSIDE. [Suspect]
     Active Substance: SODIUM NITROPRUSSIDE
     Indication: CARDIOGENIC SHOCK
  4. SODIUM NITROPRUSSIDE. [Suspect]
     Active Substance: SODIUM NITROPRUSSIDE
     Indication: RESPIRATORY FAILURE

REACTIONS (1)
  - Drug ineffective [Unknown]
